FAERS Safety Report 4973964-5 (Version None)
Quarter: 2006Q2

REPORT INFORMATION
  Report Type: 
  Country: None (occurrence: None)
  Receive Date: 20060410
  Receipt Date: 20060322
  Transmission Date: 20061013
  Serious: Yes (Death, Other)
  Sender: FDA-Public Use
  Company Number: US200512002320

PATIENT
  Age: 72 Year
  Sex: Female

DRUGS (17)
  1. FORTEO [Suspect]
     Indication: BACK PAIN
     Dates: start: 20040101, end: 20050101
  2. FORTEO [Concomitant]
  3. METFORMIN [Concomitant]
  4. GABAPENTIN [Concomitant]
  5. FLUTICASONE PROPIONATE W/SALMETEROL (FLUTICASONE PROPIONATE, SALMETERO [Concomitant]
  6. ALBUTEROL [Concomitant]
  7. SULCRATE [Concomitant]
  8. OMEPRAZOLE [Concomitant]
  9. OXYBUTYNIN [Concomitant]
  10. ASA (ASPIRIN (ACETYLSALICYLIC ACID) CAPSULE [Concomitant]
  11. LORAZEPAM [Concomitant]
  12. AMITRIPTYLINE HCL [Concomitant]
  13. GLUCOSAMINE [Concomitant]
  14. CHONDROITIN SULFATE [Concomitant]
  15. MULTIVITAMINS, PLAIN [Concomitant]
  16. CALCIUM GLUCONATE [Concomitant]
  17. ERGOCALCIFEROL (VITAMIN D) (ERGOCALCIFEROL (VITAMIN D) UNKNOWN FORMULA [Concomitant]

REACTIONS (24)
  - ARRHYTHMIA [None]
  - ARTHRALGIA [None]
  - BLOOD ALKALINE PHOSPHATASE INCREASED [None]
  - BRAIN OEDEMA [None]
  - COLLAGEN DISORDER [None]
  - COLLAPSE OF LUNG [None]
  - EMPHYSEMA [None]
  - FIBROUS HISTIOCYTOMA [None]
  - GRANULOMA [None]
  - HAEMOGLOBIN DECREASED [None]
  - HEPATIC NEOPLASM MALIGNANT [None]
  - LUNG CANCER METASTATIC [None]
  - MALIGNANT FIBROUS HISTIOCYTOMA [None]
  - METASTASES TO BONE [None]
  - METASTASES TO CENTRAL NERVOUS SYSTEM [None]
  - METASTASES TO CHEST WALL [None]
  - METASTASES TO LIVER [None]
  - METASTASES TO SOFT TISSUE [None]
  - NECK PAIN [None]
  - PAIN [None]
  - PLEURAL EFFUSION [None]
  - SARCOMA [None]
  - SCAR [None]
  - SHOULDER PAIN [None]
